FAERS Safety Report 15195148 (Version 1)
Quarter: 2018Q3

REPORT INFORMATION
  Report Type: Spontaneous
  Country: JP (occurrence: JP)
  Receive Date: 20180725
  Receipt Date: 20180725
  Transmission Date: 20181010
  Serious: Yes (Other)
  Sender: FDA-Public Use
  Company Number: JP-009507513-1807JPN009567

PATIENT
  Age: 64 Year
  Sex: Female

DRUGS (2)
  1. MIRTAZAPINE. [Suspect]
     Active Substance: MIRTAZAPINE
     Dosage: UNKNOWN
     Route: 048
     Dates: start: 201010, end: 201610
  2. DEPROMEL [Suspect]
     Active Substance: FLUVOXAMINE
     Dosage: UNKNOWN (50 MG, FREQUENCY UNKNOWN)
     Route: 048
     Dates: start: 201009, end: 201610

REACTIONS (1)
  - Hypercreatinaemia [Unknown]
